FAERS Safety Report 9481858 (Version 1)
Quarter: 2013Q3

REPORT INFORMATION
  Report Type: Spontaneous
  Country: US (occurrence: US)
  Receive Date: 20130828
  Receipt Date: 20130828
  Transmission Date: 20140515
  Serious: No
  Sender: FDA-Public Use
  Company Number: US-009507513-1308USA013363

PATIENT
  Age: 28 Year
  Sex: Female
  Weight: 147.39 kg

DRUGS (2)
  1. IMPLANON [Suspect]
     Indication: CONTRACEPTION
     Dosage: UNK
     Dates: start: 20100224
  2. ASPIRIN [Concomitant]

REACTIONS (4)
  - Urticaria [Unknown]
  - Depression [Unknown]
  - Libido decreased [Unknown]
  - Weight increased [Unknown]
